FAERS Safety Report 5694423-0 (Version None)
Quarter: 2008Q2

REPORT INFORMATION
  Report Type: 
  Country: None (occurrence: None)
  Receive Date: 20080404
  Receipt Date: 20080331
  Transmission Date: 20081010
  Serious: Yes (Hospitalization)
  Sender: FDA-Public Use
  Company Number: DE-BRISTOL-MYERS SQUIBB COMPANY-14108484

PATIENT
  Age: 60 Year
  Sex: Female
  Weight: 62 kg

DRUGS (1)
  1. SPRYCEL [Suspect]
     Indication: MASTOCYTOSIS
     Dosage: TABLETS.

REACTIONS (8)
  - ANXIETY [None]
  - CHILLS [None]
  - CIRCULATORY COLLAPSE [None]
  - DYSPNOEA [None]
  - HYPERHIDROSIS [None]
  - LIPASE INCREASED [None]
  - NAUSEA [None]
  - RED BLOOD CELL COUNT DECREASED [None]
